FAERS Safety Report 5318042-0 (Version None)
Quarter: 2007Q1

REPORT INFORMATION
  Report Type: 
  Country: None (occurrence: None)
  Receive Date: 20070202
  Receipt Date: 20060629
  Transmission Date: 20070707
  Serious: Yes (Hospitalization)
  Sender: FDA-Public Use
  Company Number: 453655

PATIENT
  Sex: Female

DRUGS (3)
  1. INVIRASE [Suspect]
     Indication: DRUG USE FOR UNKNOWN INDICATION
     Dosage: ORAL
     Route: 048
     Dates: start: 20060315
  2. NORVIR [Concomitant]
  3. COMBIVIR [Concomitant]

REACTIONS (1)
  - BLOOD POTASSIUM DECREASED [None]
